FAERS Safety Report 4778449-7 (Version None)
Quarter: 2005Q3

REPORT INFORMATION
  Report Type: 
  Country: None (occurrence: None)
  Receive Date: 20050923
  Receipt Date: 20050923
  Transmission Date: 20060218
  Serious: Yes (Other)
  Sender: FDA-Public Use
  Company Number: None

PATIENT
  Age: 69 Year
  Sex: Male
  Weight: 114.8 kg

DRUGS (11)
  1. FLUVASTATIN [Suspect]
  2. HYPROMELLOSE [Concomitant]
  3. ASPIRIN [Concomitant]
  4. BRIMONIDINE TARTRATE [Concomitant]
  5. GEMFIBROZIL [Concomitant]
  6. LISINOPRIL [Concomitant]
  7. OMEGA-3 (N-3) POLYUNSAT FATTY ACID [Concomitant]
  8. DORZOLAMIDE 2/TIMOLOL [Concomitant]
  9. TRAVOPROST [Concomitant]
  10. PILOCARPINE HCL [Concomitant]
  11. GLYBURIDE 5MG/METFORMIN HCL 500MG [Concomitant]

REACTIONS (1)
  - MYALGIA [None]
